FAERS Safety Report 19041407 (Version 1)
Quarter: 2021Q1

REPORT INFORMATION
  Report Type: Other
  Country: ES (occurrence: ES)
  Receive Date: 20210323
  Receipt Date: 20210323
  Transmission Date: 20210420
  Serious: Yes (Other)
  Sender: FDA-Public Use
  Company Number: ES-CADILA HEALTHCARE LIMITED-ES-ZYDUS-063205

PATIENT

DRUGS (5)
  1. TRAZODONE [Interacting]
     Active Substance: TRAZODONE HYDROCHLORIDE
     Indication: MEDICATION ERROR
     Dosage: 100 MILLIGRAM
     Route: 048
     Dates: start: 20210210, end: 20210210
  2. TRYPTIZOL [Interacting]
     Active Substance: AMITRIPTYLINE HYDROCHLORIDE
     Indication: MEDICATION ERROR
     Dosage: 25 MILLIGRAM
     Route: 048
     Dates: start: 20210210, end: 20210210
  3. LORAZEPAM. [Interacting]
     Active Substance: LORAZEPAM
     Indication: PRODUCT USED FOR UNKNOWN INDICATION
     Dosage: 1 MILLIGRAM, QD
     Route: 048
     Dates: start: 20210210, end: 20210210
  4. TRAMADOL. [Suspect]
     Active Substance: TRAMADOL
     Indication: MEDICATION ERROR
     Dosage: 100 MILLIGRAM
     Route: 048
     Dates: start: 20210210, end: 20210210
  5. MIRTAZAPINE. [Interacting]
     Active Substance: MIRTAZAPINE
     Indication: MEDICATION ERROR
     Dosage: 30 MILLIGRAM
     Route: 048
     Dates: start: 20210210, end: 20210210

REACTIONS (4)
  - Depressed level of consciousness [Recovered/Resolved]
  - Somnolence [Recovered/Resolved]
  - Disorientation [Recovered/Resolved]
  - Wrong patient received product [Recovered/Resolved]

NARRATIVE: CASE EVENT DATE: 20210210
